FAERS Safety Report 13880695 (Version 1)
Quarter: 2017Q3

REPORT INFORMATION
  Report Type: Spontaneous
  Country: AR (occurrence: AR)
  Receive Date: 20170818
  Receipt Date: 20170818
  Transmission Date: 20171127
  Serious: Yes (Hospitalization, Other)
  Sender: FDA-Public Use
  Company Number: AR-AMGEN-ARGSP2017125438

PATIENT
  Age: 55 Year
  Sex: Female

DRUGS (1)
  1. ENBREL [Suspect]
     Active Substance: ETANERCEPT
     Indication: RHEUMATOID ARTHRITIS
     Dosage: 25 MG, WEEKLY
     Route: 065
     Dates: start: 20060303

REACTIONS (12)
  - Blood sodium decreased [Recovering/Resolving]
  - Blood magnesium decreased [Recovering/Resolving]
  - Influenza [Not Recovered/Not Resolved]
  - Spinal cord injury [Recovering/Resolving]
  - Osteoarthritis [Recovering/Resolving]
  - Osteoporosis [Recovering/Resolving]
  - Localised infection [Recovering/Resolving]
  - Urinary tract infection [Recovering/Resolving]
  - Decreased immune responsiveness [Not Recovered/Not Resolved]
  - Foot deformity [Not Recovered/Not Resolved]
  - Blood potassium decreased [Recovering/Resolving]
  - Limb injury [Recovering/Resolving]

NARRATIVE: CASE EVENT DATE: 2006
